FAERS Safety Report 12781680 (Version 4)
Quarter: 2016Q4

REPORT INFORMATION
  Report Type: Report from Study
  Country: US (occurrence: US)
  Receive Date: 20160926
  Receipt Date: 20161130
  Transmission Date: 20170207
  Serious: Yes (Other)
  Sender: FDA-Public Use
  Company Number: PHEH2016US024302

PATIENT
  Sex: Female

DRUGS (1)
  1. GILENYA [Suspect]
     Active Substance: FINGOLIMOD HYDROCHLORIDE
     Indication: MULTIPLE SCLEROSIS
     Dosage: 0.5 MG, QD
     Route: 048
     Dates: start: 20160317

REACTIONS (28)
  - Weight decreased [Unknown]
  - Hypokinesia [Unknown]
  - Muscular weakness [Unknown]
  - Malaise [Unknown]
  - Balance disorder [Unknown]
  - Vertigo [Unknown]
  - Depression [Unknown]
  - Pain in extremity [Unknown]
  - Anxiety [Unknown]
  - Memory impairment [Unknown]
  - Temperature intolerance [Unknown]
  - Disturbance in attention [Unknown]
  - Sleep disorder [Unknown]
  - JC virus test positive [Unknown]
  - Metamorphopsia [Unknown]
  - Fatigue [Unknown]
  - Limb discomfort [Unknown]
  - Attention deficit/hyperactivity disorder [Unknown]
  - Paraesthesia [Unknown]
  - Migraine [Unknown]
  - Hemiparesis [Unknown]
  - Stress [Unknown]
  - Multiple sclerosis relapse [Unknown]
  - General physical health deterioration [Unknown]
  - Gait disturbance [Unknown]
  - Cognitive disorder [Unknown]
  - Hypoaesthesia [Unknown]
  - Hypotension [Unknown]
